APPROVED DRUG PRODUCT: PROCARDIA
Active Ingredient: NIFEDIPINE
Strength: 10MG
Dosage Form/Route: CAPSULE;ORAL
Application: N018482 | Product #001 | TE Code: AB
Applicant: PFIZER INC
Approved: Approved Prior to Jan 1, 1982 | RLD: Yes | RS: Yes | Type: RX